FAERS Safety Report 9761394 (Version 4)
Quarter: 2014Q1

REPORT INFORMATION
  Report Type: Spontaneous
  Country: US (occurrence: US)
  Receive Date: 20131216
  Receipt Date: 20140221
  Transmission Date: 20141002
  Serious: Yes (Other)
  Sender: FDA-Public Use
  Company Number: US-PFIZER INC-2013355233

PATIENT
  Age: 50 Year
  Sex: Male

DRUGS (3)
  1. XALKORI [Suspect]
     Indication: LUNG NEOPLASM MALIGNANT
     Dosage: 250 MG, BID
     Route: 048
     Dates: start: 20130912, end: 20131010
  2. XALKORI [Suspect]
     Dosage: 200 MG, BID
     Route: 048
     Dates: start: 20131022, end: 20131028
  3. LIPITOR [Concomitant]
     Indication: HYPERLIPIDAEMIA
     Dosage: UNK
     Dates: end: 20131011

REACTIONS (1)
  - Hepatitis acute [Recovering/Resolving]
